FAERS Safety Report 16904765 (Version 1)
Quarter: 2019Q4

REPORT INFORMATION
  Report Type: Spontaneous
  Country: US (occurrence: US)
  Receive Date: 20190819
  Receipt Date: 20190819
  Transmission Date: 20200122
  Serious: No
  Sender: FDA-Public Use
  Company Number: None

PATIENT
  Age: 81 Year
  Sex: Male

DRUGS (6)
  1. HUMIRA [Suspect]
     Active Substance: ADALIMUMAB
     Indication: SPONDYLOARTHROPATHY
     Dosage: ?          OTHER FREQUENCY:ONCE EVERY 10 DAY;?
     Route: 058
     Dates: start: 20170316
  2. VENTOLIN HFA [Concomitant]
     Active Substance: ALBUTEROL SULFATE
  3. PLAVIX [Concomitant]
     Active Substance: CLOPIDOGREL BISULFATE
  4. METHOTREXATE. [Concomitant]
     Active Substance: METHOTREXATE
  5. CLARITIN [Concomitant]
     Active Substance: LORATADINE
  6. ISBORBIDE [Concomitant]

REACTIONS (1)
  - Hepatic cancer [None]
